FAERS Safety Report 18227527 (Version 1)
Quarter: 2020Q3

REPORT INFORMATION
  Report Type: Spontaneous
  Country: US (occurrence: US)
  Receive Date: 20200903
  Receipt Date: 20200903
  Transmission Date: 20201103
  Serious: No
  Sender: FDA-Public Use
  Company Number: US-EISAI MEDICAL RESEARCH-EC-2020-079259

PATIENT
  Sex: Female

DRUGS (2)
  1. LENVIMA [Suspect]
     Active Substance: LENVATINIB
     Indication: ENDOMETRIAL CANCER
     Dosage: DOSAGE AND FREQUENCY UNKNOWN
     Route: 048
  2. KEYTRUDA [Suspect]
     Active Substance: PEMBROLIZUMAB
     Indication: ENDOMETRIAL CANCER
     Route: 042

REACTIONS (8)
  - Neuropathy peripheral [Unknown]
  - Spinal pain [Unknown]
  - Urinary tract infection [Unknown]
  - Restless legs syndrome [Unknown]
  - Bone pain [Unknown]
  - Neck pain [Unknown]
  - Myalgia [Unknown]
  - Insomnia [Unknown]
